FAERS Safety Report 7944094-5 (Version None)
Quarter: 2011Q4

REPORT INFORMATION
  Report Type: 
  Country: None (occurrence: None)
  Receive Date: 20111128
  Receipt Date: 20111117
  Transmission Date: 20120403
  Serious: Yes (Hospitalization, Disabling)
  Sender: FDA-Public Use
  Company Number: DE-ASTRAZENECA-2011SE69713

PATIENT
  Age: 71 Year
  Sex: Male
  Weight: 114 kg

DRUGS (9)
  1. QUETIAPINE [Suspect]
     Indication: DEPRESSION
     Dosage: 50-50-25-100 MG
     Route: 048
     Dates: start: 20101201, end: 20110501
  2. AMLODIPINE [Concomitant]
  3. TRIMIPRAMINE MALEATE [Concomitant]
     Indication: DEPRESSION
     Dosage: 150 MG, 0-0-0-1
     Route: 048
  4. RAMIPRIL [Concomitant]
  5. METOPROLOL TARTRATE [Concomitant]
  6. SIMVASTATIN [Concomitant]
  7. INSULIN [Concomitant]
  8. LEVODOPA [Concomitant]
     Indication: RESTLESS LEGS SYNDROME
     Dosage: 200 MG, 0-0-0-1
     Route: 048
  9. DIPIPERON [Concomitant]
     Indication: DEPRESSION
     Dosage: 40 MG, 0-0-20-20
     Route: 048

REACTIONS (3)
  - CHEST PAIN [None]
  - DYSPNOEA [None]
  - CHEST DISCOMFORT [None]
